FAERS Safety Report 11472596 (Version 2)
Quarter: 2015Q4

REPORT INFORMATION
  Report Type: Report from Study
  Country: US (occurrence: JP)
  Receive Date: 20150908
  Receipt Date: 20151124
  Transmission Date: 20160304
  Serious: Yes (Hospitalization)
  Sender: FDA-Public Use
  Company Number: JP-FRI-1000079463

PATIENT
  Age: 38 Year
  Sex: Female
  Weight: 48 kg

DRUGS (2)
  1. LINACLOTIDE (OPEN-LABEL) [Suspect]
     Active Substance: LINACLOTIDE
     Indication: IRRITABLE BOWEL SYNDROME
     Dosage: 0.5 MG
     Route: 048
     Dates: start: 20150306, end: 20150824
  2. PLACEBO [Suspect]
     Active Substance: UNSPECIFIED INGREDIENT
     Indication: IRRITABLE BOWEL SYNDROME
     Dates: start: 20141212, end: 20150305

REACTIONS (1)
  - Colitis [Recovered/Resolved]

NARRATIVE: CASE EVENT DATE: 20150824
